FAERS Safety Report 9871038 (Version 1)
Quarter: 2014Q1

REPORT INFORMATION
  Report Type: Report from Study
  Country: US (occurrence: US)
  Receive Date: 20140205
  Receipt Date: 20140205
  Transmission Date: 20141002
  Serious: Yes (Death, Hospitalization)
  Sender: FDA-Public Use
  Company Number: GXBR2014US000585

PATIENT
  Age: 71 Year
  Sex: Male
  Weight: 57.6 kg

DRUGS (1)
  1. ENOXAPARIN SODIUM [Suspect]
     Indication: DEEP VEIN THROMBOSIS
     Dosage: 90 MG, QD
     Route: 058

REACTIONS (4)
  - Cardiac arrest [Fatal]
  - H1N1 influenza [Fatal]
  - Pneumothorax [Fatal]
  - Pneumonia [Not Recovered/Not Resolved]
